FAERS Safety Report 4630343-8 (Version None)
Quarter: 2005Q2

REPORT INFORMATION
  Report Type: 
  Country: None (occurrence: None)
  Receive Date: 20050408
  Receipt Date: 20050330
  Transmission Date: 20051028
  Serious: Yes (Death, Hospitalization)
  Sender: FDA-Public Use
  Company Number: FR-BRISTOL-MYERS SQUIBB COMPANY-12918074

PATIENT
  Age: 49 Year
  Sex: Male
  Weight: 70 kg

DRUGS (4)
  1. VIDEX EC [Suspect]
     Indication: HIV INFECTION
     Route: 048
     Dates: start: 20021209, end: 20030228
  2. ZERIT [Suspect]
     Indication: HIV INFECTION
     Route: 048
     Dates: start: 20021209, end: 20030228
  3. NORVIR [Suspect]
     Indication: HIV INFECTION
     Dates: start: 20020515, end: 20030228
  4. AGENERASE [Suspect]
     Indication: HIV INFECTION
     Dates: start: 20020515, end: 20030228

REACTIONS (5)
  - DEATH [None]
  - DEHYDRATION [None]
  - HEPATITIS CHOLESTATIC [None]
  - HYPOVOLAEMIA [None]
  - LACTIC ACIDOSIS [None]
